FAERS Safety Report 10174399 (Version 2)
Quarter: 2014Q2

REPORT INFORMATION
  Report Type: Spontaneous
  Country: US (occurrence: US)
  Receive Date: 20140515
  Receipt Date: 20140519
  Transmission Date: 20141212
  Serious: Yes (Hospitalization, Other)
  Sender: FDA-Public Use
  Company Number: US-GILEAD-2014-0102218

PATIENT
  Age: 53 Year
  Sex: Male

DRUGS (12)
  1. ATRIPLA [Suspect]
     Indication: HIV INFECTION
     Dosage: 1 DF, QD
     Route: 048
     Dates: start: 20090527
  2. TRAZODONE [Concomitant]
     Dosage: UNK
     Dates: start: 2012
  3. ATORVASTATIN [Concomitant]
     Dosage: UNK
     Dates: start: 2009
  4. LISINOPRIL [Concomitant]
     Dosage: UNK
     Dates: start: 2011
  5. NAPROXEN [Concomitant]
     Dosage: UNK
     Dates: start: 2014
  6. AMITRIPTYLINE [Concomitant]
     Dosage: UNK
     Dates: start: 1996
  7. CLOPIDOGREL [Concomitant]
     Dosage: UNK
     Dates: start: 2011
  8. GABAPENTIN [Concomitant]
     Dosage: UNK
     Dates: start: 2011, end: 2011
  9. DULOXETINE [Concomitant]
     Dosage: UNK
  10. ALPRAZOLAM [Concomitant]
     Dosage: UNK
     Dates: end: 2011
  11. RISPERIDONE [Concomitant]
     Dosage: UNK
     Dates: start: 2011, end: 2011
  12. ACETAMINOPHEN W/HYDROCODONE [Concomitant]
     Indication: PAIN
     Dosage: UNK
     Dates: start: 2011

REACTIONS (12)
  - Hip arthroplasty [Unknown]
  - Deformity [Unknown]
  - Breast tenderness [Unknown]
  - Infection [Unknown]
  - Musculoskeletal chest pain [Unknown]
  - Hyperhidrosis [Unknown]
  - Road traffic accident [Unknown]
  - Pain [Unknown]
  - Depression [Unknown]
  - Nausea [Unknown]
  - Breast enlargement [Unknown]
  - Gynaecomastia [Unknown]
